FAERS Safety Report 21333745 (Version 4)
Quarter: 2022Q4

REPORT INFORMATION
  Report Type: Report from Study
  Country: SE (occurrence: SE)
  Receive Date: 20220914
  Receipt Date: 20221104
  Transmission Date: 20230112
  Serious: Yes (Hospitalization, Other)
  Sender: FDA-Public Use
  Company Number: SE-BRISTOL-MYERS SQUIBB COMPANY-2022-103350

PATIENT
  Age: 70 Year
  Sex: Male
  Weight: 76.50 kg

DRUGS (33)
  1. LENALIDOMIDE [Suspect]
     Active Substance: LENALIDOMIDE
     Indication: B-cell lymphoma
     Route: 048
     Dates: start: 20220622, end: 20220712
  2. LENALIDOMIDE [Suspect]
     Active Substance: LENALIDOMIDE
     Indication: Follicular lymphoma
     Dosage: RECENT DOSE
     Route: 048
     Dates: start: 20220720, end: 20220729
  3. LENALIDOMIDE [Suspect]
     Active Substance: LENALIDOMIDE
     Route: 048
     Dates: start: 20220821
  4. EPCORITAMAB [Suspect]
     Active Substance: EPCORITAMAB
     Indication: Follicular lymphoma
     Dosage: INTERMEDIATE DOSE: 0.8 MG
     Route: 058
     Dates: start: 20220629, end: 20220629
  5. EPCORITAMAB [Suspect]
     Active Substance: EPCORITAMAB
     Indication: B-cell lymphoma
     Route: 058
     Dates: start: 20220720, end: 20220720
  6. EPCORITAMAB [Suspect]
     Active Substance: EPCORITAMAB
     Dosage: FULL DOSE, HE RECEIVED LATEST DOSE OF EPCORITAMAB PRIOR TO AE ON 20/JUL/2022
     Route: 058
     Dates: start: 20220706, end: 20220706
  7. EPCORITAMAB [Suspect]
     Active Substance: EPCORITAMAB
     Dosage: ON 20-JUL-2022 PRIOR TO THE EVENT ONSET, THE PATIENT RECEIVED CYCLE 2(CYCLE 2 DAY 1) OF EPCORITAMAB
     Route: 058
     Dates: start: 20220817, end: 20220824
  8. EPCORITAMAB [Suspect]
     Active Substance: EPCORITAMAB
     Dosage: PRIMINING DOSE:0.16 MG
     Route: 058
     Dates: start: 20220622, end: 20220622
  9. EPCORITAMAB [Suspect]
     Active Substance: EPCORITAMAB
     Route: 058
     Dates: start: 20220928
  10. RITUXIMAB [Suspect]
     Active Substance: RITUXIMAB
     Indication: B-cell lymphoma
     Route: 042
     Dates: start: 20220622, end: 20220622
  11. RITUXIMAB [Suspect]
     Active Substance: RITUXIMAB
     Route: 058
     Dates: start: 20220629, end: 20220706
  12. RITUXIMAB [Suspect]
     Active Substance: RITUXIMAB
     Route: 058
     Dates: start: 20220830
  13. BETAMETASON [BETAMETHASONE SODIUM PHOSPHATE] [Concomitant]
     Indication: Product used for unknown indication
     Route: 065
     Dates: start: 20220713
  14. COCILLANA [ETHYLMORPHINE HYDROCHLORIDE] [Concomitant]
     Indication: Product used for unknown indication
     Route: 065
     Dates: start: 20220729
  15. KALIUMKLORID [Concomitant]
     Indication: Product used for unknown indication
     Route: 065
     Dates: start: 20220720, end: 20220817
  16. KLORAMFENIKOL [CHLORAMPHENICOL] [Concomitant]
     Indication: Product used for unknown indication
     Route: 065
     Dates: start: 20220727, end: 20220928
  17. MAGNESIUM HYDROXIDE [Concomitant]
     Active Substance: MAGNESIUM HYDROXIDE
     Indication: Product used for unknown indication
     Route: 065
     Dates: start: 20220713, end: 20220817
  18. ASPIRIN [Concomitant]
     Active Substance: ASPIRIN
     Indication: Product used for unknown indication
     Route: 065
     Dates: start: 20210621
  19. ACYCLOVIR [Concomitant]
     Active Substance: ACYCLOVIR
     Indication: Product used for unknown indication
     Route: 065
     Dates: start: 20190903
  20. CYSTEIN [Concomitant]
     Indication: Product used for unknown indication
     Route: 065
     Dates: start: 20220803
  21. DOXYCYCLINE [Concomitant]
     Active Substance: DOXYCYCLINE
     Indication: Product used for unknown indication
     Route: 065
     Dates: start: 20220629, end: 20220720
  22. CETIRIZINE HYDROCHLORIDE [Concomitant]
     Active Substance: CETIRIZINE HYDROCHLORIDE
     Indication: Premedication
     Route: 048
     Dates: start: 20220622, end: 20220629
  23. CETIRIZINE HYDROCHLORIDE [Concomitant]
     Active Substance: CETIRIZINE HYDROCHLORIDE
     Route: 048
     Dates: start: 20220706, end: 20220720
  24. CETIRIZINE HYDROCHLORIDE [Concomitant]
     Active Substance: CETIRIZINE HYDROCHLORIDE
     Route: 048
     Dates: start: 20220817
  25. ACETAMINOPHEN [Concomitant]
     Active Substance: ACETAMINOPHEN
     Indication: Premedication
     Route: 048
     Dates: start: 20220622, end: 20220629
  26. ACETAMINOPHEN [Concomitant]
     Active Substance: ACETAMINOPHEN
     Route: 048
     Dates: start: 20220706, end: 20220720
  27. ACETAMINOPHEN [Concomitant]
     Active Substance: ACETAMINOPHEN
     Route: 048
     Dates: start: 20220817
  28. PREDNISONE [Concomitant]
     Active Substance: PREDNISONE
     Indication: Prophylaxis
     Route: 048
     Dates: start: 20220622, end: 20220625
  29. PREDNISONE [Concomitant]
     Active Substance: PREDNISONE
     Route: 048
     Dates: start: 20220629, end: 20220702
  30. PREDNISONE [Concomitant]
     Active Substance: PREDNISONE
     Route: 048
     Dates: start: 20220706, end: 20220709
  31. PREDNISONE [Concomitant]
     Active Substance: PREDNISONE
     Route: 048
     Dates: start: 20220713, end: 20220716
  32. PREDNISONE [Concomitant]
     Active Substance: PREDNISONE
     Route: 048
     Dates: start: 20220817, end: 20220820
  33. SULFAMETHOXAZOLE\TRIMETHOPRIM [Concomitant]
     Active Substance: SULFAMETHOXAZOLE\TRIMETHOPRIM
     Indication: Product used for unknown indication
     Route: 065
     Dates: start: 20220711

REACTIONS (1)
  - Haemophilus infection [Recovered/Resolved]

NARRATIVE: CASE EVENT DATE: 20220727
